FAERS Safety Report 12978120 (Version 1)
Quarter: 2016Q4

REPORT INFORMATION
  Report Type: Spontaneous
  Country: US (occurrence: US)
  Receive Date: 20161123
  Receipt Date: 20161123
  Transmission Date: 20170207
  Serious: No
  Sender: FDA-Public Use
  Company Number: None

PATIENT
  Age: 65 Year
  Sex: Male
  Weight: 88.53 kg

DRUGS (1)
  1. SILDENAFIL CITRATE 20 MG UNKNOWN [Suspect]
     Active Substance: SILDENAFIL CITRATE
     Indication: ORGANIC ERECTILE DYSFUNCTION
     Dosage: 20 MG, 2-3 TABS 1 HR PRIOR TO SEX PRN ORAL
     Route: 048
     Dates: start: 20160630, end: 20161117

REACTIONS (2)
  - Treatment failure [None]
  - Drug effect decreased [None]

NARRATIVE: CASE EVENT DATE: 20160810
